FAERS Safety Report 8872106 (Version 1)
Quarter: 2012Q4

REPORT INFORMATION
  Report Type: 
  Country: JP (occurrence: JP)
  Receive Date: 20121029
  Receipt Date: 20121029
  Transmission Date: 20130627
  Serious: Yes (Hospitalization)
  Sender: FDA-Public Use
  Company Number: JP-MERCK-2012SP010391

PATIENT
  Age: 45 Year
  Sex: Female
  Weight: 49.5 kg

DRUGS (16)
  1. REFLEX [Suspect]
     Indication: DEPRESSION
     Dosage: 15 mg, QD
     Route: 048
     Dates: start: 20101126, end: 20101210
  2. REFLEX [Suspect]
     Dosage: 30 mg, QD
     Route: 048
     Dates: start: 20101211, end: 20110207
  3. REFLEX [Suspect]
     Dosage: 15 mg, QD
     Route: 048
     Dates: start: 20110208
  4. ZYPREXA [Suspect]
     Indication: DEPRESSION
     Dosage: 5 mg, QD
     Route: 048
     Dates: end: 20111021
  5. APRAZ [Concomitant]
     Indication: DEPRESSION
     Dosage: DEPRESSION/DEPRESSED STATE
     Route: 048
     Dates: start: 20101004, end: 20110926
  6. PAROXETINE HYDROCHLORIDE [Concomitant]
     Indication: DEPRESSION
     Dosage: 20 mg, qd
     Route: 048
     Dates: start: 20101014
  7. DOMPERIDONE [Concomitant]
     Indication: DEPRESSION
     Dosage: 10 mg, qd
     Route: 048
     Dates: start: 20101014
  8. RILMAZAFONE HYDROCHLORIDE [Concomitant]
     Indication: DEPRESSION
     Dosage: 2 mg, qd
     Route: 048
     Dates: start: 20101029, end: 20101220
  9. LORAZEPAM [Concomitant]
     Indication: DEPRESSION
     Dosage: DEPRESSION/DEPRESSED STATE
     Route: 048
     Dates: start: 20101004, end: 20101210
  10. BROMAZEPAM [Concomitant]
     Indication: DEPRESSION
     Dosage: 5 mg, qd
     Route: 048
     Dates: start: 20101210, end: 20110114
  11. LEVOMEPROMAZINE MALEATE [Concomitant]
     Indication: DEPRESSION
     Dosage: 15 mg, qd
     Route: 048
     Dates: start: 20101227, end: 20110214
  12. BROTIZOLAM [Concomitant]
     Indication: DEPRESSION
     Dosage: 0.25 mg, qd
     Route: 048
     Dates: start: 20101227
  13. NITRAZEPAM [Concomitant]
     Indication: DEPRESSION
     Dosage: 5 mg, qd
     Route: 048
     Dates: start: 20101227
  14. MAGNESIUM OXIDE [Concomitant]
     Indication: CONSTIPATION
     Dosage: 1.5 g, QD
     Route: 048
  15. HYSERENIN TABLETS 100 MG [Concomitant]
     Indication: DEPRESSION
     Dosage: DEPRESSION/DEPRESSED STATE
     Route: 048
  16. EPINASTINE HYDROCHLORIDE [Concomitant]
     Indication: RHINITIS ALLERGIC
     Dosage: 20 mg, qd
     Route: 048

REACTIONS (3)
  - Suicide attempt [Recovering/Resolving]
  - Overdose [Unknown]
  - Increased appetite [Recovering/Resolving]
